FAERS Safety Report 5204583-3 (Version None)
Quarter: 2007Q1

REPORT INFORMATION
  Report Type: 
  Country: None (occurrence: None)
  Receive Date: 20070110
  Receipt Date: 20060711
  Transmission Date: 20070707
  Serious: No
  Sender: FDA-Public Use
  Company Number: US-BRISTOL-MYERS SQUIBB COMPANY-13378476

PATIENT
  Age: 83 Year
  Sex: Female

DRUGS (3)
  1. ABILIFY [Suspect]
     Indication: ADJUSTMENT DISORDER
     Route: 048
     Dates: start: 20051101, end: 20060403
  2. PLAVIX [Concomitant]
  3. DULOXETINE HCL [Concomitant]
     Indication: NEURALGIA

REACTIONS (1)
  - TARDIVE DYSKINESIA [None]
